FAERS Safety Report 6037079-X (Version None)
Quarter: 2009Q1

REPORT INFORMATION
  Report Type: 
  Country: None (occurrence: None)
  Receive Date: 20090114
  Receipt Date: 20090106
  Transmission Date: 20090719
  Serious: Yes (Other)
  Sender: FDA-Public Use
  Company Number: US-CELGENEUS-163-20785-09010160

PATIENT
  Age: 67 Year
  Sex: Male

DRUGS (4)
  1. THALOMID [Suspect]
     Route: 048
  2. THALOMID [Suspect]
     Route: 048
  3. IMMUNE GLOBULIN INTRAVENOUS (HUMAN) [Suspect]
     Dosage: 2 G/KG
     Route: 051
  4. IMMUNE GLOBULIN INTRAVENOUS (HUMAN) [Suspect]
     Dosage: 2 G/KG
     Route: 051

REACTIONS (3)
  - ARTERIAL STENOSIS [None]
  - ISCHAEMIC STROKE [None]
  - MYOCARDIAL ISCHAEMIA [None]
